FAERS Safety Report 7216317-1 (Version None)
Quarter: 2011Q1

REPORT INFORMATION
  Report Type: 
  Country: None (occurrence: None)
  Receive Date: 20110105
  Receipt Date: 20110105
  Transmission Date: 20110831
  Serious: Yes (Disabling)
  Sender: FDA-Public Use
  Company Number: None

PATIENT
  Age: 69 Year
  Sex: Female
  Weight: 56.6996 kg

DRUGS (3)
  1. SIMVASTATIN [Concomitant]
  2. LEVOTHYROXINE SODIUM [Concomitant]
  3. CLINDAMYCIN [Suspect]
     Indication: ORAL SURGERY
     Dosage: 300 MG 2 X DAY ORALLY
     Route: 048
     Dates: start: 20101213, end: 20101220

REACTIONS (5)
  - FAECES DISCOLOURED [None]
  - PRODUCT LABEL ISSUE [None]
  - MUSCLE SPASMS [None]
  - GASTROINTESTINAL PAIN [None]
  - ABDOMINAL PAIN UPPER [None]
